FAERS Safety Report 7834070-5 (Version None)
Quarter: 2011Q4

REPORT INFORMATION
  Report Type: 
  Country: None (occurrence: None)
  Receive Date: 20111024
  Receipt Date: 20111024
  Transmission Date: 20120403
  Serious: No
  Sender: FDA-Public Use
  Company Number: None

PATIENT
  Age: 70 Year
  Sex: Female
  Weight: 72.574 kg

DRUGS (1)
  1. PREPARATION H [Suspect]

REACTIONS (3)
  - MOTOR DYSFUNCTION [None]
  - AGITATION [None]
  - TREMOR [None]
